FAERS Safety Report 4796597-2 (Version None)
Quarter: 2005Q4

REPORT INFORMATION
  Report Type: 
  Country: None (occurrence: None)
  Receive Date: 20051013
  Receipt Date: 20051005
  Transmission Date: 20060501
  Serious: Yes (Other)
  Sender: FDA-Public Use
  Company Number: US-BRISTOL-MYERS SQUIBB COMPANY-13136015

PATIENT
  Sex: Female

DRUGS (7)
  1. ESTRACE [Suspect]
     Indication: MENOPAUSAL SYMPTOMS
  2. ESTRADIOL [Suspect]
     Indication: MENOPAUSAL SYMPTOMS
  3. PREMARIN [Suspect]
     Indication: MENOPAUSAL SYMPTOMS
  4. ESTROPIPATE [Suspect]
     Indication: MENOPAUSAL SYMPTOMS
  5. PROVERA [Suspect]
     Indication: MENOPAUSAL SYMPTOMS
  6. CYCRIN [Suspect]
     Indication: MENOPAUSAL SYMPTOMS
  7. MEDROXYPROGESTERONE ACETATE [Suspect]
     Indication: MENOPAUSAL SYMPTOMS

REACTIONS (1)
  - BREAST CANCER [None]
